FAERS Safety Report 15375044 (Version 1)
Quarter: 2018Q3

REPORT INFORMATION
  Report Type: Spontaneous
  Country: GB (occurrence: GB)
  Receive Date: 20180912
  Receipt Date: 20180912
  Transmission Date: 20181010
  Serious: Yes (Other)
  Sender: FDA-Public Use
  Company Number: GB-PFIZER INC-2018359716

PATIENT
  Sex: Female

DRUGS (1)
  1. SERTRALINE HCL [Suspect]
     Active Substance: SERTRALINE HYDROCHLORIDE
     Dosage: 100 MG, 1X/DAY
     Route: 048
     Dates: start: 20180807

REACTIONS (7)
  - Headache [Not Recovered/Not Resolved]
  - Irritability [Not Recovered/Not Resolved]
  - Psychomotor hyperactivity [Not Recovered/Not Resolved]
  - Anxiety [Not Recovered/Not Resolved]
  - Heart rate increased [Not Recovered/Not Resolved]
  - Product substitution issue [Unknown]
  - Insomnia [Not Recovered/Not Resolved]
